FAERS Safety Report 6656841-3 (Version None)
Quarter: 2010Q1

REPORT INFORMATION
  Report Type: 
  Country: None (occurrence: None)
  Receive Date: 20100325
  Receipt Date: 20100313
  Transmission Date: 20100710
  Serious: Yes (Hospitalization)
  Sender: FDA-Public Use
  Company Number: 232646J10USA

PATIENT
  Age: 51 Year
  Sex: Female

DRUGS (4)
  1. REBIF [Suspect]
     Indication: MULTIPLE SCLEROSIS
     Dosage: 8.8 MCG, 3 IN 1 WEEKS,  SUBCUTANEOUS
     Route: 058
     Dates: start: 20100225, end: 20100303
  2. BACLOFEN [Concomitant]
  3. FLEXERIL [Concomitant]
  4. OMEPRAZOLE [Concomitant]

REACTIONS (4)
  - DEHYDRATION [None]
  - HEADACHE [None]
  - INFLUENZA LIKE ILLNESS [None]
  - URINARY TRACT INFECTION [None]
